FAERS Safety Report 24285098 (Version 1)
Quarter: 2024Q3

REPORT INFORMATION
  Report Type: Report from Study
  Country: US (occurrence: US)
  Receive Date: 20240905
  Receipt Date: 20240905
  Transmission Date: 20241016
  Serious: Yes (Other)
  Sender: MYLAN
  Company Number: US-MYLANLABS-2024M1080385

PATIENT
  Sex: Male

DRUGS (12)
  1. DEXAMETHASONE [Suspect]
     Active Substance: DEXAMETHASONE
     Indication: POEMS syndrome
     Dosage: UNK,PART OF KRD REGIMEN
     Route: 065
  2. DEXAMETHASONE [Suspect]
     Active Substance: DEXAMETHASONE
     Dosage: UNK,PART OF DCD REGIMEN
     Route: 065
  3. DEXAMETHASONE [Suspect]
     Active Substance: DEXAMETHASONE
     Dosage: UNK,PART OF ERD REGIMEN
     Route: 065
  4. DEXAMETHASONE [Suspect]
     Active Substance: DEXAMETHASONE
     Dosage: UNK,PART OF DPD REGIMEN
  5. DARATUMUMAB [Suspect]
     Active Substance: DARATUMUMAB
     Indication: POEMS syndrome
     Dosage: UNK,PART OF DCD REGIMEN
     Route: 065
  6. DARATUMUMAB [Suspect]
     Active Substance: DARATUMUMAB
     Dosage: UNK,PART OF DPD REGIMEN
     Route: 065
  7. CARFILZOMIB [Suspect]
     Active Substance: CARFILZOMIB
     Indication: POEMS syndrome
     Dosage: UNK,PART OF KRD REGIMEN
     Route: 065
  8. LENALIDOMIDE [Suspect]
     Active Substance: LENALIDOMIDE
     Indication: POEMS syndrome
     Dosage: UNK,PART OF KRD REGIMEN
     Route: 065
  9. LENALIDOMIDE [Suspect]
     Active Substance: LENALIDOMIDE
     Dosage: UNK,PART OF ERD REGIMEN
     Route: 065
  10. CYCLOPHOSPHAMIDE [Suspect]
     Active Substance: CYCLOPHOSPHAMIDE
     Indication: POEMS syndrome
     Dosage: UNK,PART OF DCD REGIMEN
     Route: 065
  11. ELOTUZUMAB [Suspect]
     Active Substance: ELOTUZUMAB
     Indication: POEMS syndrome
     Dosage: UNK,PART OF ERD REGIMEN
     Route: 065
  12. POMALIDOMIDE [Suspect]
     Active Substance: POMALIDOMIDE
     Indication: POEMS syndrome
     Dosage: UNK,PART OF DPD REGIMEN
     Route: 065

REACTIONS (1)
  - Therapy non-responder [Unknown]
